FAERS Safety Report 12172401 (Version 1)
Quarter: 2016Q1

REPORT INFORMATION
  Report Type: Other
  Country: US (occurrence: US)
  Receive Date: 20160311
  Receipt Date: 20160311
  Transmission Date: 20160526
  Serious: Yes (Other)
  Sender: FDA-Public Use
  Company Number: US-SHIRE-US201602700

PATIENT
  Age: 60 Year
  Sex: Female

DRUGS (1)
  1. GATTEX [Suspect]
     Active Substance: TEDUGLUTIDE\WATER
     Indication: SHORT-BOWEL SYNDROME
     Dosage: UNK
     Route: 058
     Dates: start: 201506

REACTIONS (4)
  - Weight increased [Unknown]
  - Fluid retention [Unknown]
  - Breast mass [Unknown]
  - Thirst [Unknown]

NARRATIVE: CASE EVENT DATE: 20160226
